FAERS Safety Report 13127531 (Version 3)
Quarter: 2017Q1

REPORT INFORMATION
  Report Type: Report from Study
  Country: BR (occurrence: BR)
  Receive Date: 20170118
  Receipt Date: 20170315
  Transmission Date: 20170428
  Serious: Yes (Hospitalization, Other)
  Sender: FDA-Public Use
  Company Number: PHHY2017BR004920

PATIENT
  Sex: Female
  Weight: 65 kg

DRUGS (1)
  1. EXJADE [Suspect]
     Active Substance: DEFERASIROX
     Indication: SICKLE CELL ANAEMIA
     Dosage: 2000 MG, QD (FOUR 500MG TABLETS)
     Route: 048

REACTIONS (12)
  - Haemoglobin decreased [Unknown]
  - Pain [Unknown]
  - Weight decreased [Unknown]
  - Serum ferritin increased [Unknown]
  - Vomiting [Unknown]
  - Pneumonia [Unknown]
  - Lung infection [Unknown]
  - Hypotension [Unknown]
  - Infection [Unknown]
  - Thoracic outlet syndrome [Unknown]
  - Hypertension [Unknown]
  - Hepatomegaly [Unknown]
